FAERS Safety Report 5357553-9 (Version None)
Quarter: 2007Q2

REPORT INFORMATION
  Report Type: 
  Country: None (occurrence: None)
  Receive Date: 20070614
  Receipt Date: 20070604
  Transmission Date: 20071010
  Serious: Yes (Life-Threatening)
  Sender: FDA-Public Use
  Company Number: FR-PFIZER INC-2007047536

PATIENT
  Age: 67 Year
  Sex: Female
  Weight: 107 kg

DRUGS (6)
  1. FRAGMIN [Suspect]
     Route: 058
     Dates: start: 20070311, end: 20070319
  2. FLUINDIONE [Interacting]
     Dosage: TEXT:1 DF
     Route: 048
     Dates: start: 20070311, end: 20070319
  3. IDARAC [Concomitant]
     Route: 048
  4. LAMALINE [Concomitant]
     Route: 048
  5. ENALAPRIL MALEATE [Concomitant]
     Route: 048
  6. CALCIUM CARBONATE [Concomitant]

REACTIONS (6)
  - ANAEMIA [None]
  - DRUG INTERACTION [None]
  - HAEMATOMA [None]
  - HEPATIC ENZYME INCREASED [None]
  - RENAL FAILURE ACUTE [None]
  - SHOCK [None]
